FAERS Safety Report 5322301-5 (Version None)
Quarter: 2007Q2

REPORT INFORMATION
  Report Type: 
  Country: None (occurrence: None)
  Receive Date: 20070511
  Receipt Date: 20070503
  Transmission Date: 20071010
  Serious: Yes (Death, Life-Threatening)
  Sender: FDA-Public Use
  Company Number: B0469928A

PATIENT
  Age: 86 Year
  Sex: Male

DRUGS (6)
  1. AUGMENTIN '125' [Suspect]
     Indication: ENCEPHALOPATHY
     Route: 048
     Dates: start: 20061101, end: 20061115
  2. CORDARONE [Concomitant]
     Route: 048
  3. PREVISCAN [Concomitant]
     Route: 048
  4. LOXEN [Concomitant]
     Indication: ESSENTIAL HYPERTENSION
     Route: 048
  5. IRBESARTAN [Concomitant]
     Indication: ESSENTIAL HYPERTENSION
     Route: 048
  6. FENOFIBRATE [Concomitant]
     Route: 048
     Dates: end: 20060901

REACTIONS (14)
  - CHOLANGITIS [None]
  - HEPATIC ENCEPHALOPATHY [None]
  - HEPATIC FAILURE [None]
  - HEPATIC FIBROSIS [None]
  - HEPATITIS TOXIC [None]
  - HEPATOCELLULAR DAMAGE [None]
  - JAUNDICE [None]
  - JAUNDICE CHOLESTATIC [None]
  - PANCREATIC CYST [None]
  - PROTHROMBIN LEVEL DECREASED [None]
  - RENAL FAILURE ACUTE [None]
  - RENAL TUBULAR DISORDER [None]
  - SERUM FERRITIN INCREASED [None]
  - WEIGHT DECREASED [None]
